FAERS Safety Report 6329694-0 (Version None)
Quarter: 2009Q3

REPORT INFORMATION
  Report Type: 
  Country: None (occurrence: None)
  Receive Date: 20090826
  Receipt Date: 20090819
  Transmission Date: 20100115
  Serious: Yes (Death)
  Sender: FDA-Public Use
  Company Number: US-WYE-H10652109

PATIENT
  Sex: Male
  Weight: 69.73 kg

DRUGS (10)
  1. TORISEL [Suspect]
     Indication: METASTATIC RENAL CELL CARCINOMA
     Route: 042
     Dates: start: 20080801, end: 20090811
  2. SYNTHROID [Concomitant]
  3. POTASSIUM CHLORIDE [Concomitant]
     Indication: OEDEMA
     Dosage: NOT PROVIDED
     Dates: start: 20090701
  4. ZOLOFT [Concomitant]
  5. CODEINE PHOSPHATE/PARACETAMOL [Concomitant]
  6. ARANESP [Concomitant]
     Indication: HAEMOGLOBIN DECREASED
     Dosage: EVERY 2 WEEKS AS NEEDED FOR HEMOGLOBIN BELOW 10
  7. FUROSEMIDE [Concomitant]
     Indication: OEDEMA
     Dosage: NOT PROVIDED
     Dates: start: 20090701
  8. ZANTAC [Concomitant]
  9. AVODART [Concomitant]
  10. MEGESTROL ACETATE [Concomitant]

REACTIONS (1)
  - DEATH [None]
